FAERS Safety Report 10298271 (Version 1)
Quarter: 2014Q3

REPORT INFORMATION
  Report Type: Spontaneous
  Country: US (occurrence: US)
  Receive Date: 20140711
  Receipt Date: 20140711
  Transmission Date: 20150326
  Serious: No
  Sender: FDA-Public Use
  Company Number: US-GLAXOSMITHKLINE-A1065415A

PATIENT
  Sex: Male

DRUGS (2)
  1. RANITIDINE [Concomitant]
     Active Substance: RANITIDINE\RANITIDINE HYDROCHLORIDE
  2. FLOVENT [Suspect]
     Active Substance: FLUTICASONE PROPIONATE
     Indication: RESPIRATORY DISTRESS
     Dosage: 2PUFF AT NIGHT
     Route: 055
     Dates: start: 201307

REACTIONS (4)
  - Drug administration error [Unknown]
  - Off label use [Unknown]
  - Pharyngitis streptococcal [Unknown]
  - Sinusitis [Unknown]
